FAERS Safety Report 18468708 (Version 2)
Quarter: 2021Q1

REPORT INFORMATION
  Report Type: Report from Study
  Country: None (occurrence: DE)
  Receive Date: 20201105
  Receipt Date: 20210318
  Transmission Date: 20210419
  Serious: Yes (Hospitalization, Other)
  Sender: FDA-Public Use
  Company Number: DE-ABBVIE-20K-062-3636104-00

PATIENT
  Age: 66 Year
  Sex: Female

DRUGS (5)
  1. CORTISONE [Concomitant]
     Active Substance: CORTISONE
     Indication: PAIN
     Dosage: 20 MG, DAILY
     Dates: start: 20210223
  2. CORTISONE [Concomitant]
     Active Substance: CORTISONE
     Dosage: 10 MG, DAILY
  3. INSULIN [Concomitant]
     Active Substance: INSULIN NOS
     Indication: PRODUCT USED FOR UNKNOWN INDICATION
  4. HUMIRA [Suspect]
     Active Substance: ADALIMUMAB
     Indication: PRODUCT USED FOR UNKNOWN INDICATION
     Dosage: UNK, UNKNOWN
     Route: 065
  5. BARICITINIB. [Suspect]
     Active Substance: BARICITINIB
     Indication: RHEUMATOID ARTHRITIS
     Dosage: 4 MG, DAILY
     Route: 048
     Dates: start: 20191111, end: 20201010

REACTIONS (14)
  - Neuralgia [Not Recovered/Not Resolved]
  - Ear discomfort [Not Recovered/Not Resolved]
  - Asthenia [Unknown]
  - Haematoma [Unknown]
  - Dizziness [Not Recovered/Not Resolved]
  - Cardiac steatosis [Unknown]
  - Joint range of motion decreased [Not Recovered/Not Resolved]
  - Eye injury [Unknown]
  - Herpes zoster [Not Recovered/Not Resolved]
  - Off label use [Unknown]
  - Myocardial oedema [Unknown]
  - Intervertebral disc protrusion [Not Recovered/Not Resolved]
  - Decreased appetite [Not Recovered/Not Resolved]
  - Pulmonary oedema [Unknown]

NARRATIVE: CASE EVENT DATE: 202006
